FAERS Safety Report 17889615 (Version 1)
Quarter: 2020Q2

REPORT INFORMATION
  Report Type: Spontaneous
  Country: US (occurrence: US)
  Receive Date: 20200611
  Receipt Date: 20200611
  Transmission Date: 20200714
  Serious: Yes (Hospitalization)
  Sender: FDA-Public Use
  Company Number: None

PATIENT
  Age: 20 Year
  Sex: Male

DRUGS (4)
  1. IRON HIGH [Concomitant]
     Dates: start: 20181009
  2. MU LTIVIIJFI [Concomitant]
     Dates: start: 20171229
  3. BOOST [Concomitant]
     Active Substance: DIETARY SUPPLEMENT
  4. HUMIRA [Suspect]
     Active Substance: ADALIMUMAB
     Indication: ILL-DEFINED DISORDER
     Route: 058
     Dates: start: 20180119

REACTIONS (2)
  - Eye infection [None]
  - Therapy interrupted [None]

NARRATIVE: CASE EVENT DATE: 20200520
